FAERS Safety Report 25767517 (Version 1)
Quarter: 2025Q3

REPORT INFORMATION
  Report Type: Spontaneous
  Country: BR (occurrence: BR)
  Receive Date: 20250905
  Receipt Date: 20250905
  Transmission Date: 20251021
  Serious: Yes (Life-Threatening, Hospitalization)
  Sender: FRESENIUS KABI
  Company Number: BR-FreseniusKabi-FK202512150

PATIENT
  Age: 23 Year
  Sex: Female
  Weight: 70 kg

DRUGS (14)
  1. PROPOFOL [Suspect]
     Active Substance: PROPOFOL
     Indication: Induction of anaesthesia
     Route: 042
     Dates: start: 20250828, end: 20250828
  2. CEFAZOLIN SODIUM [Suspect]
     Active Substance: CEFAZOLIN SODIUM
     Indication: Antibiotic prophylaxis
     Route: 042
     Dates: start: 20250828, end: 20250828
  3. ROCURONIUM BROMIDE [Suspect]
     Active Substance: ROCURONIUM BROMIDE
     Indication: Induction of anaesthesia
     Route: 042
     Dates: start: 20250828, end: 20250828
  4. FENTANYL CITRATE [Suspect]
     Active Substance: FENTANYL CITRATE
     Indication: Induction of anaesthesia
     Route: 042
     Dates: start: 20250828, end: 20250828
  5. FENTANYL [Suspect]
     Active Substance: FENTANYL
     Indication: Induction of anaesthesia
     Route: 042
     Dates: start: 20250828, end: 20250828
  6. Lidocaine Hydrochloride 2% Isobaric [Concomitant]
     Indication: Product used for unknown indication
     Route: 061
  7. DEXAMETHASONE [Concomitant]
     Active Substance: DEXAMETHASONE
     Indication: Product used for unknown indication
     Route: 042
  8. KETOROLAC [Concomitant]
     Active Substance: KETOROLAC TROMETHAMINE
     Indication: Product used for unknown indication
     Route: 042
  9. ONDANSETRON HYDROCHLORIDE [Concomitant]
     Active Substance: ONDANSETRON HYDROCHLORIDE
     Indication: Product used for unknown indication
     Route: 042
  10. MEZP [Concomitant]
     Indication: Product used for unknown indication
     Route: 042
  11. NOVALGIN (METAMIZOLE SODIUM) [Concomitant]
     Active Substance: METAMIZOLE SODIUM
     Indication: Product used for unknown indication
     Route: 042
  12. Vidisic Gel [Concomitant]
     Indication: Product used for unknown indication
     Route: 047
  13. XYLESTESIN 2% Sterile Jelly [Concomitant]
     Indication: Product used for unknown indication
  14. Oxymetazoline Nasal Solution [Concomitant]
     Indication: Product used for unknown indication
     Route: 045

REACTIONS (3)
  - Wheezing [Recovering/Resolving]
  - Respiratory failure [Recovering/Resolving]
  - Cardiac failure acute [Recovering/Resolving]

NARRATIVE: CASE EVENT DATE: 20250828
